FAERS Safety Report 13766412 (Version 1)
Quarter: 2017Q3

REPORT INFORMATION
  Report Type: Spontaneous
  Country: US (occurrence: US)
  Receive Date: 20170718
  Receipt Date: 20170718
  Transmission Date: 20171127
  Serious: Yes (Hospitalization)
  Sender: FDA-Public Use
  Company Number: None

PATIENT
  Age: 59 Year
  Sex: Male
  Weight: 139.9 kg

DRUGS (1)
  1. ENTRESTO [Suspect]
     Active Substance: SACUBITRIL\VALSARTAN
     Indication: CARDIAC FAILURE
     Dosage: ?          OTHER DOSE:MG;?
     Route: 048

REACTIONS (7)
  - Diarrhoea [None]
  - Dysphagia [None]
  - Hypotension [None]
  - Urticaria [None]
  - Dyspnoea [None]
  - Swollen tongue [None]
  - Lip swelling [None]

NARRATIVE: CASE EVENT DATE: 20170714
